FAERS Safety Report 17447466 (Version 1)
Quarter: 2020Q1

REPORT INFORMATION
  Report Type: Spontaneous
  Country: US (occurrence: US)
  Receive Date: 20200221
  Receipt Date: 20200221
  Transmission Date: 20200409
  Serious: No
  Sender: FDA-Public Use
  Company Number: US-JAZZ-2019-US-017186

PATIENT

DRUGS (5)
  1. XYREM [Suspect]
     Active Substance: SODIUM OXYBATE
     Indication: NARCOLEPSY
     Dosage: 3.75 G, BID
     Route: 048
  2. CONCERTA [Concomitant]
     Active Substance: METHYLPHENIDATE HYDROCHLORIDE
  3. ESOMEPRAZOLE MAGNESIUM. [Concomitant]
     Active Substance: ESOMEPRAZOLE MAGNESIUM
  4. RITALIN [Concomitant]
     Active Substance: METHYLPHENIDATE HYDROCHLORIDE
  5. SINGULAIR [Concomitant]
     Active Substance: MONTELUKAST SODIUM

REACTIONS (1)
  - Paraesthesia [Unknown]
